FAERS Safety Report 4687424-2 (Version None)
Quarter: 2005Q2

REPORT INFORMATION
  Report Type: 
  Country: None (occurrence: None)
  Receive Date: 20050609
  Receipt Date: 20050609
  Transmission Date: 20051028
  Serious: Yes (Other)
  Sender: FDA-Public Use
  Company Number: None

PATIENT
  Sex: Male
  Weight: 90 kg

DRUGS (4)
  1. PACLITAXEL [Suspect]
     Indication: OESOPHAGEAL CARCINOMA
     Dates: start: 20050110
  2. CISPLATIN [Suspect]
     Indication: OESOPHAGEAL CARCINOMA
     Dates: start: 20050110
  3. FLUOROURACIL [Suspect]
     Indication: OESOPHAGEAL CARCINOMA
     Dosage: CONTINUOU INFUSION
     Dates: start: 20050110
  4. RADIATION [Suspect]
     Indication: OESOPHAGEAL CARCINOMA
     Dates: start: 20050110

REACTIONS (16)
  - ANASTOMOTIC LEAK [None]
  - ANURIA [None]
  - ATRIAL FIBRILLATION [None]
  - BLOOD PRESSURE DECREASED [None]
  - CITROBACTER INFECTION [None]
  - CONFUSIONAL STATE [None]
  - DIALYSIS [None]
  - ENTEROBACTER INFECTION [None]
  - OESOPHAGEAL ANASTOMOSIS [None]
  - PLEURAL EFFUSION [None]
  - PNEUMONIA [None]
  - POST PROCEDURAL COMPLICATION [None]
  - POSTOPERATIVE INFECTION [None]
  - PSEUDOMONAS INFECTION [None]
  - RESPIRATORY DISTRESS [None]
  - SURGICAL PROCEDURE REPEATED [None]
